FAERS Safety Report 4355583-7 (Version None)
Quarter: 2004Q2

REPORT INFORMATION
  Report Type: 
  Country: None (occurrence: None)
  Receive Date: 20040510
  Receipt Date: 20040303
  Transmission Date: 20050107
  Serious: Yes (Other)
  Sender: FDA-Public Use
  Company Number: NL-GLAXOSMITHKLINE-B0325418A

PATIENT
  Age: 78 Year
  Sex: Female
  Weight: 84 kg

DRUGS (6)
  1. ROSIGLITAZONE MALEATE [Suspect]
     Indication: DIABETES MELLITUS
     Dosage: 4MG PER DAY
     Route: 048
     Dates: start: 20031128, end: 20040204
  2. GLYBURIDE [Concomitant]
     Dosage: 15MG PER DAY
     Route: 048
     Dates: start: 19920101
  3. ACTRAPID [Concomitant]
     Dosage: 30U PER DAY
     Dates: start: 20010501
  4. ZESTRIL [Concomitant]
     Dosage: 20MG PER DAY
     Route: 048
     Dates: start: 19940101
  5. TRIAMTERENE + EPITHIAZIDE [Concomitant]
     Dates: start: 19560101
  6. METHIMAZOLE [Concomitant]
     Route: 048
     Dates: start: 20010501

REACTIONS (7)
  - ABASIA [None]
  - FATIGUE [None]
  - HYPOGLYCAEMIA [None]
  - MUSCLE CRAMP [None]
  - OEDEMA PERIPHERAL [None]
  - TREMOR [None]
  - VISION BLURRED [None]
